FAERS Safety Report 12477169 (Version 1)
Quarter: 2016Q2

REPORT INFORMATION
  Report Type: Spontaneous
  Country: US (occurrence: US)
  Receive Date: 20160617
  Receipt Date: 20160617
  Transmission Date: 20160815
  Serious: Yes (Death, Hospitalization, Other)
  Sender: FDA-Public Use
  Company Number: US-AMGEN-217082

PATIENT
  Age: 47 Year
  Sex: Female

DRUGS (2)
  1. DEXAMETHASONE. [Concomitant]
     Active Substance: DEXAMETHASONE
     Dosage: 16 MG, UNK
     Dates: start: 19990929, end: 19991001
  2. NEUPOGEN [Suspect]
     Active Substance: FILGRASTIM
     Indication: PERIPHERAL BLOOD STEM CELL APHERESIS
     Dosage: 780 MUG, QD
     Route: 058
     Dates: start: 19990927, end: 19990930

REACTIONS (7)
  - Multi-organ disorder [Unknown]
  - Disseminated intravascular coagulation [Unknown]
  - Anaemia [Unknown]
  - Cardiac arrest [Unknown]
  - Spleen disorder [Unknown]
  - Respiratory arrest [Unknown]
  - Sickle cell anaemia [Fatal]

NARRATIVE: CASE EVENT DATE: 19991001
